FAERS Safety Report 7141741-5 (Version None)
Quarter: 2010Q4

REPORT INFORMATION
  Report Type: 
  Country: None (occurrence: None)
  Receive Date: 20101207
  Receipt Date: 20101123
  Transmission Date: 20110411
  Serious: Yes (Other)
  Sender: FDA-Public Use
  Company Number: NL-MEDIMMUNE-MEDI-0011871

PATIENT
  Sex: Male
  Weight: 5.1 kg

DRUGS (3)
  1. SYNAGIS [Suspect]
     Route: 030
     Dates: start: 20101026, end: 20101026
  2. SYNAGIS [Suspect]
     Route: 030
     Dates: start: 20101123
  3. MICONAZOLE [Concomitant]
     Dates: start: 20101101, end: 20101101

REACTIONS (5)
  - BODY TEMPERATURE DECREASED [None]
  - CONVULSION [None]
  - MUSCLE SPASMS [None]
  - OXYGEN SATURATION DECREASED [None]
  - PALLOR [None]
